FAERS Safety Report 13050630 (Version 2)
Quarter: 2018Q1

REPORT INFORMATION
  Report Type: Spontaneous
  Country: US (occurrence: US)
  Receive Date: 20161221
  Receipt Date: 20180307
  Transmission Date: 20180508
  Serious: No
  Sender: FDA-Public Use
  Company Number: US-PFIZER INC-2016580151

PATIENT
  Age: 57 Year
  Sex: Female

DRUGS (1)
  1. IBRANCE [Suspect]
     Active Substance: PALBOCICLIB
     Indication: BREAST CANCER
     Dosage: 125 MG, DAILY (1 CAP DAILY X 21 DAY)
     Route: 048
     Dates: start: 201608

REACTIONS (3)
  - Oropharyngeal pain [Unknown]
  - Nasopharyngitis [Unknown]
  - Head discomfort [Unknown]

NARRATIVE: CASE EVENT DATE: 20161212
